FAERS Safety Report 12172503 (Version 4)
Quarter: 2016Q2

REPORT INFORMATION
  Report Type: Spontaneous
  Country: US (occurrence: US)
  Receive Date: 20160311
  Receipt Date: 20160502
  Transmission Date: 20160815
  Serious: Yes (Hospitalization, Other)
  Sender: FDA-Public Use
  Company Number: US-UCBSA-2016008556

PATIENT
  Age: 0 Year
  Sex: Female
  Weight: 3.45 kg

DRUGS (12)
  1. VITAMIN D [Concomitant]
     Active Substance: CHOLECALCIFEROL
     Indication: BONE DISORDER
     Dosage: 4000 IU, ONCE DAILY (QD)
     Route: 064
     Dates: start: 20150101, end: 20150906
  2. FOLIC ACID. [Concomitant]
     Active Substance: FOLIC ACID
     Indication: PREGNANCY
     Dosage: 5 MG, ONCE DAILY (QD)
     Route: 064
     Dates: start: 201412, end: 20150906
  3. VITAMIN D [Concomitant]
     Active Substance: CHOLECALCIFEROL
     Dosage: 4000 IU, ONCE DAILY (QD)
     Route: 063
     Dates: start: 2015
  4. KEPPRA XR [Suspect]
     Active Substance: LEVETIRACETAM
     Dosage: 2000 MG, ONCE DAILY (QD)
     Route: 064
     Dates: start: 2015, end: 2015
  5. FISH OIL [Concomitant]
     Active Substance: FISH OIL
     Dosage: 1400 MG, ONCE DAILY (QD)
     Route: 063
     Dates: start: 2015
  6. KEPPRA XR [Suspect]
     Active Substance: LEVETIRACETAM
     Dosage: 1500 MG, ONCE DAILY (QD)
     Route: 063
     Dates: start: 2015, end: 20151210
  7. FISH OIL [Concomitant]
     Active Substance: FISH OIL
     Indication: PRODUCT USED FOR UNKNOWN INDICATION
     Dosage: 1400 MG, ONCE DAILY (QD)
     Route: 064
     Dates: start: 201412, end: 20150906
  8. VITAMIN D [Concomitant]
     Active Substance: CHOLECALCIFEROL
     Indication: PRODUCT USED FOR UNKNOWN INDICATION
     Dosage: 1 MG, ONCE DAILY (QD)
     Dates: start: 20151005
  9. KEPPRA XR [Suspect]
     Active Substance: LEVETIRACETAM
     Indication: BRAIN OPERATION
     Dosage: 1000 MG, DAILY
     Route: 064
     Dates: start: 201412, end: 2015
  10. KEPPRA XR [Suspect]
     Active Substance: LEVETIRACETAM
     Dosage: 1500 MG, ONCE DAILY (QD)
     Route: 064
     Dates: start: 2015, end: 2015
  11. PNV [Concomitant]
     Indication: PRODUCT USED FOR UNKNOWN INDICATION
     Dosage: UNK
  12. FOLIC ACID. [Concomitant]
     Active Substance: FOLIC ACID
     Dosage: 5 MG, ONCE DAILY (QD)
     Route: 063
     Dates: start: 2015, end: 20151120

REACTIONS (13)
  - Tremor [Not Recovered/Not Resolved]
  - Blindness [Recovering/Resolving]
  - Hypokinesia [Unknown]
  - Agitation neonatal [Not Recovered/Not Resolved]
  - Somnolence [Unknown]
  - Delayed visual maturation [Unknown]
  - Developmental delay [Not Recovered/Not Resolved]
  - Sluggishness [Recovered/Resolved]
  - Poor weight gain neonatal [Unknown]
  - Hypotonia [Unknown]
  - Exposure during breast feeding [Unknown]
  - Respiratory syncytial virus infection [Unknown]
  - Foetal exposure during pregnancy [Unknown]

NARRATIVE: CASE EVENT DATE: 201412
